FAERS Safety Report 9886553 (Version 1)
Quarter: 2014Q1

REPORT INFORMATION
  Report Type: Spontaneous
  Country: FR (occurrence: FR)
  Receive Date: 20140210
  Receipt Date: 20140210
  Transmission Date: 20141002
  Serious: Yes (Hospitalization)
  Sender: FDA-Public Use
  Company Number: FR-WATSON-2014-02008

PATIENT
  Age: 91 Year
  Sex: Male

DRUGS (2)
  1. RAMIPRIL ACTAVIS [Suspect]
     Indication: HYPERTENSION
     Dosage: 2.5 MG, DAILY
     Route: 048
     Dates: end: 20130328
  2. FUROSEMIDE ARROW [Suspect]
     Indication: HYPERTENSION
     Dosage: 40 MG, DAILY
     Route: 048
     Dates: end: 20130328

REACTIONS (2)
  - Renal failure acute [Recovered/Resolved]
  - Hypotension [Recovered/Resolved]
